FAERS Safety Report 11010030 (Version 1)
Quarter: 2015Q2

REPORT INFORMATION
  Report Type: Report from Study
  Country: US (occurrence: US)
  Receive Date: 20150410
  Receipt Date: 20150410
  Transmission Date: 20150821
  Serious: Yes (Hospitalization, Other)
  Sender: FDA-Public Use
  Company Number: US-CELGENEUS-163-21880-11120285

PATIENT
  Age: 70 Year
  Sex: Male
  Weight: 95.16 kg

DRUGS (2)
  1. REVLIMID [Suspect]
     Active Substance: LENALIDOMIDE
     Route: 048
     Dates: start: 20110815, end: 20110920
  2. REVLIMID [Suspect]
     Active Substance: LENALIDOMIDE
     Indication: CHRONIC LYMPHOCYTIC LEUKAEMIA
     Route: 048
     Dates: start: 20110826, end: 20110920

REACTIONS (4)
  - Thrombocytopenia [Recovered/Resolved]
  - Neuralgia [Recovered/Resolved]
  - Neutropenia [Recovered/Resolved]
  - Herpes zoster disseminated [Recovered/Resolved]

NARRATIVE: CASE EVENT DATE: 20110823
